FAERS Safety Report 8438158-X (Version None)
Quarter: 2012Q2

REPORT INFORMATION
  Report Type: 
  Country: None (occurrence: None)
  Receive Date: 20120614
  Receipt Date: 20120605
  Transmission Date: 20120825
  Serious: Yes (Hospitalization, Other)
  Sender: FDA-Public Use
  Company Number: JP-ROCHE-614115

PATIENT
  Sex: Female
  Weight: 53 kg

DRUGS (28)
  1. ACTEMRA [Suspect]
     Route: 041
  2. PREDNISOLONE [Concomitant]
     Route: 048
     Dates: start: 20090109, end: 20090520
  3. PREDNISOLONE [Concomitant]
     Route: 048
  4. WARFARIN POTASSIUM [Concomitant]
     Route: 048
  5. TACROLIMUS [Suspect]
  6. LOXONIN [Concomitant]
     Route: 048
  7. ACTEMRA [Suspect]
     Route: 041
     Dates: start: 20100121, end: 20100902
  8. PREDNISOLONE [Concomitant]
     Route: 048
  9. ACTEMRA [Suspect]
     Indication: RHEUMATOID ARTHRITIS
     Route: 041
     Dates: start: 20081225, end: 20081225
  10. ACTEMRA [Suspect]
     Route: 041
     Dates: start: 20090402, end: 20090402
  11. TACROLIMUS [Suspect]
     Dates: start: 20081026, end: 20081224
  12. PREDNISOLONE [Concomitant]
     Route: 048
     Dates: start: 20081017, end: 20081027
  13. LANSOPRAZOLE [Concomitant]
     Dosage: FORM: ORAL FORMULATION (NOT OTHERWISE SPECIFIED)
     Route: 048
  14. ACTEMRA [Suspect]
     Route: 041
     Dates: start: 20090123, end: 20090123
  15. ACTEMRA [Suspect]
     Route: 041
     Dates: start: 20090430, end: 20090430
  16. ACTEMRA [Suspect]
     Route: 041
     Dates: start: 20090618, end: 20090618
  17. PREDNISOLONE [Concomitant]
     Route: 048
     Dates: start: 20081028, end: 20081106
  18. WARFARIN POTASSIUM [Concomitant]
     Dosage: DRUG REPORTED AS WARFARIN
     Route: 048
  19. ACTEMRA [Suspect]
     Route: 041
     Dates: start: 20090521, end: 20090521
  20. FOLIAMIN [Concomitant]
     Route: 048
  21. ACTEMRA [Suspect]
     Route: 041
     Dates: start: 20100107, end: 20110101
  22. PREDNISOLONE [Concomitant]
     Route: 048
     Dates: start: 20081010, end: 20081016
  23. ISONIAZID [Concomitant]
     Dosage: FORM: ORAL FORMULATION (NOT OTHERWISE SPECIFIED)
     Route: 048
  24. MECOBALAMIN [Concomitant]
     Route: 048
  25. TACROLIMUS [Suspect]
     Indication: RHEUMATOID ARTHRITIS
     Dates: start: 20080918, end: 20081025
  26. PREDNISOLONE [Concomitant]
     Route: 048
     Dates: start: 20081107, end: 20090108
  27. PREDNISOLONE [Concomitant]
     Route: 048
  28. ZOLPIDEM [Concomitant]
     Route: 048

REACTIONS (8)
  - ANAEMIA [None]
  - CELLULITIS [None]
  - PYELONEPHRITIS [None]
  - UPPER RESPIRATORY TRACT INFLAMMATION [None]
  - SEPSIS [None]
  - PANCYTOPENIA [None]
  - ENDOCARDITIS [None]
  - BACTERIAL SEPSIS [None]
